FAERS Safety Report 10553792 (Version 1)
Quarter: 2014Q4

REPORT INFORMATION
  Report Type: Other
  Country: SI (occurrence: SI)
  Receive Date: 20141030
  Receipt Date: 20141030
  Transmission Date: 20150529
  Serious: Yes (Hospitalization)
  Sender: FDA-Public Use
  Company Number: SI-ENDO PHARMACEUTICALS INC-VALP20140006

PATIENT
  Age: 2 Year
  Sex: Male

DRUGS (3)
  1. LEVETIRACETAM. [Suspect]
     Active Substance: LEVETIRACETAM
     Indication: EPILEPSY
     Dosage: UNKNOWN
     Route: 065
  2. VALPROIC ACID. [Suspect]
     Active Substance: VALPROIC ACID
     Indication: EPILEPSY
     Dosage: UNKNOWN
     Route: 065
  3. VIGABATRIN [Suspect]
     Active Substance: VIGABATRIN
     Indication: EPILEPSY
     Dosage: UNKNOWN
     Route: 065

REACTIONS (1)
  - Drug reaction with eosinophilia and systemic symptoms [Recovered/Resolved]
